FAERS Safety Report 9338743 (Version 1)
Quarter: 2013Q2

REPORT INFORMATION
  Report Type: Spontaneous
  Country: BR (occurrence: BR)
  Receive Date: 20130610
  Receipt Date: 20130610
  Transmission Date: 20140414
  Serious: Yes (Hospitalization, Other)
  Sender: FDA-Public Use
  Company Number: BR-PFIZER INC-2013172185

PATIENT
  Age: 82 Year
  Sex: Female

DRUGS (1)
  1. XALATAN [Suspect]
     Dosage: 3 UG, 1X/DAY (ONE DROP IN BOTH EYES, ONCE A DAY)
     Route: 047
     Dates: start: 201301

REACTIONS (1)
  - Cerebrovascular accident [Unknown]
